FAERS Safety Report 11741762 (Version 1)
Quarter: 2015Q4

REPORT INFORMATION
  Report Type: Spontaneous
  Country: US (occurrence: None)
  Receive Date: 20151113
  Receipt Date: 20151113
  Transmission Date: 20160304
  Serious: Yes (Other)
  Sender: FDA-Public Use
  Company Number: None

PATIENT
  Age: 72 Year
  Sex: Male

DRUGS (1)
  1. H.P. ACTHAR [Suspect]
     Active Substance: CORTICOTROPIN
     Indication: GLOMERULONEPHRITIS CHRONIC
     Dosage: 80 UNITS
     Route: 058
     Dates: start: 201412

REACTIONS (2)
  - Immunosuppression [None]
  - Gastric cancer [None]
